FAERS Safety Report 8259808-7 (Version None)
Quarter: 2012Q2

REPORT INFORMATION
  Report Type: 
  Country: None (occurrence: None)
  Receive Date: 20120404
  Receipt Date: 20120404
  Transmission Date: 20120825
  Serious: Yes (Life-Threatening)
  Sender: FDA-Public Use
  Company Number: JP-BAYER-201014689BYL

PATIENT
  Age: 55 Year
  Sex: Male

DRUGS (1)
  1. SORAFENIB [Suspect]
     Indication: HEPATIC NEOPLASM MALIGNANT
     Route: 048
     Dates: start: 20100705, end: 20100911

REACTIONS (7)
  - RENAL FAILURE ACUTE [None]
  - OEDEMA PERIPHERAL [None]
  - ALOPECIA [None]
  - PALMAR-PLANTAR ERYTHRODYSAESTHESIA SYNDROME [None]
  - WEIGHT DECREASED [None]
  - DISSEMINATED INTRAVASCULAR COAGULATION [None]
  - BLOOD BILIRUBIN INCREASED [None]
